FAERS Safety Report 16171591 (Version 1)
Quarter: 2019Q2

REPORT INFORMATION
  Report Type: Report from Study
  Country: US (occurrence: US)
  Receive Date: 20190408
  Receipt Date: 20190408
  Transmission Date: 20190711
  Serious: Yes (Hospitalization)
  Sender: FDA-Public Use
  Company Number: US-ACTELION-A-NJ2018-177712

PATIENT
  Sex: Female
  Weight: 76.19 kg

DRUGS (5)
  1. VELETRI [Suspect]
     Active Substance: EPOPROSTENOL
     Dosage: 20 NG/KG, PER MIN
     Route: 042
  2. VELETRI [Suspect]
     Active Substance: EPOPROSTENOL
     Indication: PULMONARY ARTERIAL HYPERTENSION
     Dosage: 26 NG/KG, PER MIN
     Route: 042
  3. VELETRI [Suspect]
     Active Substance: EPOPROSTENOL
     Dosage: 86 ML, 24HR
     Route: 042
  4. VELETRI [Suspect]
     Active Substance: EPOPROSTENOL
     Dosage: 22 NG/KG, PER MIN
     Route: 042
  5. VELETRI [Suspect]
     Active Substance: EPOPROSTENOL
     Dosage: 30 NG/KG PER MIN
     Route: 042

REACTIONS (17)
  - Complication associated with device [Unknown]
  - Central venous catheterisation [Unknown]
  - Headache [Unknown]
  - Rash erythematous [Unknown]
  - Dyspnoea [Recovering/Resolving]
  - Rash pruritic [Unknown]
  - Swelling face [Unknown]
  - Asthenia [Unknown]
  - Rash generalised [Not Recovered/Not Resolved]
  - Rash papular [Unknown]
  - Hot flush [Unknown]
  - Fatigue [Unknown]
  - Feeling abnormal [Unknown]
  - Eye swelling [Not Recovered/Not Resolved]
  - Eye irritation [Unknown]
  - Pruritus [Unknown]
  - Vomiting [Unknown]
